FAERS Safety Report 6436715-3 (Version None)
Quarter: 2009Q4

REPORT INFORMATION
  Report Type: 
  Country: None (occurrence: None)
  Receive Date: 20091103
  Receipt Date: 20091021
  Transmission Date: 20100525
  Serious: Yes (Other)
  Sender: FDA-Public Use
  Company Number: THYM-1001256

PATIENT
  Age: 33 Year
  Sex: Male
  Weight: 60 kg

DRUGS (3)
  1. THYMOBLOBULINE              (ANTI-THYMOCYTE GLOBULIN (RABBIT)) POWDER [Suspect]
     Indication: BONE MARROW FAILURE
     Dosage: UNK MMOL/L, INTRAVENOUS, 150 MG, QD, INTRAVENOUS
     Route: 042
     Dates: start: 20091005, end: 20091005
  2. THYMOBLOBULINE              (ANTI-THYMOCYTE GLOBULIN (RABBIT)) POWDER [Suspect]
     Indication: BONE MARROW FAILURE
     Dosage: UNK MMOL/L, INTRAVENOUS, 150 MG, QD, INTRAVENOUS
     Route: 042
     Dates: start: 20010101
  3. CYCLOSPORINE [Concomitant]

REACTIONS (2)
  - ANAPHYLACTIC SHOCK [None]
  - DISEASE RECURRENCE [None]
